FAERS Safety Report 5924050-9 (Version None)
Quarter: 2008Q4

REPORT INFORMATION
  Report Type: 
  Country: None (occurrence: None)
  Receive Date: 20081020
  Receipt Date: 20081016
  Transmission Date: 20090506
  Serious: Yes (Death)
  Sender: FDA-Public Use
  Company Number: PHBS2008US06042

PATIENT
  Age: 45 Year
  Sex: Male

DRUGS (5)
  1. SIMULECT [Suspect]
     Indication: TRANSPLANT
  2. STEROIDS NOS [Suspect]
     Indication: TRANSPLANT
  3. PROGRAFT [Suspect]
     Indication: TRANSPLANT
  4. RAPAMUNE [Suspect]
     Indication: TRANSPLANT
  5. INTERLEUKIN-2 [Suspect]
     Indication: TRANSPLANT

REACTIONS (2)
  - FUNGAEMIA [None]
  - MYCOTIC ANEURYSM [None]
